FAERS Safety Report 21082322 (Version 1)
Quarter: 2022Q3

REPORT INFORMATION
  Report Type: Spontaneous
  Country: FR (occurrence: FR)
  Receive Date: 20220714
  Receipt Date: 20220714
  Transmission Date: 20221027
  Serious: Yes (Other)
  Sender: FDA-Public Use
  Company Number: None

PATIENT
  Age: 79 Year
  Sex: Male
  Weight: 74.6 kg

DRUGS (2)
  1. DOXYCYCLINE [Suspect]
     Active Substance: DOXYCYCLINE
     Indication: Osteoarthropathy
     Dosage: UNIT DOSE : 200 MG , FREQUENCY TIME : 1 DAYS , DURATION : 7 DAYS
     Dates: start: 20220503, end: 20220510
  2. RIFAMPIN [Suspect]
     Active Substance: RIFAMPIN
     Indication: Osteoarthropathy
     Dosage: FORM STRENGTH : 300 MG , UNIT DOSE : 6 DF , FREQUENCY TIME : 1 DAYS , DURATION : 7 DAYS
     Dates: start: 20220503, end: 20220510

REACTIONS (2)
  - Hyperbilirubinaemia [Recovered/Resolved]
  - Vomiting [Recovered/Resolved]

NARRATIVE: CASE EVENT DATE: 20220506
